FAERS Safety Report 12172054 (Version 1)
Quarter: 2016Q1

REPORT INFORMATION
  Report Type: Spontaneous
  Country: US (occurrence: None)
  Receive Date: 20160310
  Receipt Date: 20160310
  Transmission Date: 20160526
  Serious: Yes (Other)
  Sender: FDA-Public Use
  Company Number: None

PATIENT
  Age: 72 Year
  Sex: Female
  Weight: 68.04 kg

DRUGS (1)
  1. KETOROLAC TROMETHAMINE 0.5% SOLN AKORN, INC 5 ML [Suspect]
     Active Substance: KETOROLAC TROMETHAMINE
     Indication: INFLAMMATION
     Route: 047
     Dates: start: 20160308

REACTIONS (4)
  - Ocular hyperaemia [None]
  - Eye discharge [None]
  - Eye swelling [None]
  - Eye irritation [None]

NARRATIVE: CASE EVENT DATE: 20160308
